FAERS Safety Report 15877277 (Version 4)
Quarter: 2019Q1

REPORT INFORMATION
  Report Type: Spontaneous
  Country: US (occurrence: US)
  Receive Date: 20190128
  Receipt Date: 20190212
  Transmission Date: 20190417
  Serious: No
  Sender: FDA-Public Use
  Company Number: US-SA-2019SA016464

PATIENT
  Age: 83 Year
  Sex: Female

DRUGS (1)
  1. ALLEGRA D-12 HOUR [Suspect]
     Active Substance: FEXOFENADINE HYDROCHLORIDE\PSEUDOEPHEDRINE HYDROCHLORIDE
     Indication: MULTIPLE ALLERGIES
     Dosage: 1 DF, QD
     Route: 065

REACTIONS (3)
  - Product residue present [Unknown]
  - Drug ineffective [Unknown]
  - Rhinorrhoea [Not Recovered/Not Resolved]
